FAERS Safety Report 8165547-3 (Version None)
Quarter: 2012Q1

REPORT INFORMATION
  Report Type: 
  Country: None (occurrence: None)
  Receive Date: 20120103
  Receipt Date: 20111011
  Transmission Date: 20120608
  Serious: No
  Sender: FDA-Public Use
  Company Number: AE-2011-002242

PATIENT
  Age: 53 Year
  Sex: Male
  Weight: 74.3899 kg

DRUGS (7)
  1. ASCORBIC ACID [Concomitant]
  2. PEGINTERFERON ALFA-2A [Concomitant]
  3. NORVIR [Concomitant]
  4. RIBAVIRNI (RIBAVIRNI) [Concomitant]
  5. TRUVADA [Concomitant]
  6. REYATEZ (ATAZANAVIR) [Concomitant]
  7. INCIVEK [Suspect]
     Dosage: 2250 MG (750 MG,1 IN 8 HR),ORAL
     Route: 048
     Dates: start: 20111011

REACTIONS (2)
  - VOMITING [None]
  - PAIN [None]
